FAERS Safety Report 13526323 (Version 1)
Quarter: 2017Q2

REPORT INFORMATION
  Report Type: Report from Study
  Country: US (occurrence: US)
  Receive Date: 20170509
  Receipt Date: 20170509
  Transmission Date: 20170830
  Serious: Yes (Hospitalization)
  Sender: FDA-Public Use
  Company Number: US-TORRENT-00002721

PATIENT
  Age: 15 Year
  Sex: Male

DRUGS (7)
  1. GUANFACINE ER [Suspect]
     Active Substance: GUANFACINE
  2. RISPERIDONE. [Suspect]
     Active Substance: RISPERIDONE
  3. ARIPIPRAZOLE. [Suspect]
     Active Substance: ARIPIPRAZOLE
  4. METHYLPHENIDATE. [Suspect]
     Active Substance: METHYLPHENIDATE
  5. LISDEXAMFETAMINE MESILATE [Suspect]
     Active Substance: LISDEXAMFETAMINE DIMESYLATE
  6. HALOPERIDOL. [Suspect]
     Active Substance: HALOPERIDOL
  7. QUETIAPINE. [Suspect]
     Active Substance: QUETIAPINE

REACTIONS (1)
  - Treatment noncompliance [Unknown]
